FAERS Safety Report 9670234 (Version 1)
Quarter: 2013Q4

REPORT INFORMATION
  Report Type: Spontaneous
  Country: US (occurrence: None)
  Receive Date: 20131104
  Receipt Date: 20131104
  Transmission Date: 20140711
  Serious: Yes (Hospitalization)
  Sender: FDA-Public Use
  Company Number: ACO_38562_2013

PATIENT
  Age: 63 Year
  Sex: Female
  Weight: 54 kg

DRUGS (3)
  1. AMPYRA (DALFAMPRIDINE) TABLET, 10MG [Suspect]
     Indication: MULTIPLE SCLEROSIS
     Route: 048
     Dates: start: 20130819
  2. AVONEX (INTERFERON BETA-1A) [Concomitant]
  3. PROLIA (DENOSUMAB) [Concomitant]

REACTIONS (1)
  - Vomiting [None]
